FAERS Safety Report 10060980 (Version 1)
Quarter: 2014Q2

REPORT INFORMATION
  Report Type: Spontaneous
  Country: US (occurrence: US)
  Receive Date: 20140405
  Receipt Date: 20140405
  Transmission Date: 20141212
  Serious: Yes (Death)
  Sender: FDA-Public Use
  Company Number: US-ROCHE-1378533

PATIENT
  Age: 60 Year
  Sex: 0

DRUGS (1)
  1. XELODA [Suspect]
     Indication: NEOPLASM MALIGNANT
     Dosage: Q PM 5 AM + 4 X 14D OFF 7
     Route: 048
     Dates: start: 20140213, end: 20140323

REACTIONS (1)
  - Death [Fatal]
